FAERS Safety Report 4906798-8 (Version None)
Quarter: 2006Q1

REPORT INFORMATION
  Report Type: 
  Country: None (occurrence: None)
  Receive Date: 20060207
  Receipt Date: 20060125
  Transmission Date: 20060701
  Serious: Yes (Life-Threatening, Hospitalization)
  Sender: FDA-Public Use
  Company Number: 144-20785-06010605

PATIENT
  Age: 75 Year
  Sex: Female

DRUGS (4)
  1. THALIDOMIDE - PHARMION (THALIDOMIDE) (50 MILLIGRAM, CAPSULES) [Suspect]
     Indication: ANGIODYSPLASIA
     Dosage: 100 MG, QD, ORAL
     Route: 048
     Dates: start: 20060102, end: 20060120
  2. ALDACTONE [Concomitant]
  3. FUROSEMIDE [Concomitant]
  4. HEPARIN [Concomitant]

REACTIONS (3)
  - ENCEPHALOPATHY [None]
  - GASTROINTESTINAL HAEMORRHAGE [None]
  - LOSS OF CONSCIOUSNESS [None]
